FAERS Safety Report 6371873-0 (Version None)
Quarter: 2009Q3

REPORT INFORMATION
  Report Type: 
  Country: None (occurrence: None)
  Receive Date: 20090923
  Receipt Date: 20090915
  Transmission Date: 20100115
  Serious: Yes (Other)
  Sender: FDA-Public Use
  Company Number: PHHY2009JP39735

PATIENT
  Sex: Female

DRUGS (7)
  1. SANDOSTATIN LAR [Suspect]
     Indication: ACROMEGALY
     Dosage: 10 MG, QMO
     Route: 030
     Dates: start: 20051026
  2. SANDOSTATIN LAR [Suspect]
     Dosage: 20 MG, QMO
     Route: 030
     Dates: start: 20050706, end: 20050928
  3. RENIVACE [Concomitant]
     Dosage: 5 MG, UNK
     Route: 048
     Dates: start: 20060322
  4. CONIEL [Concomitant]
     Dosage: 4 MG, UNK
     Route: 048
     Dates: start: 20060322
  5. CALBLOCK [Concomitant]
     Dosage: 8 MG, UNK
     Route: 048
     Dates: start: 20060222
  6. OLMETEC [Concomitant]
     Dosage: 20 MG, UNK
     Route: 048
     Dates: start: 20060322
  7. CARDENALIN [Concomitant]
     Dosage: 1 MG, UNK
     Route: 048
     Dates: start: 20060524

REACTIONS (1)
  - CARDIAC FAILURE [None]
